FAERS Safety Report 5240558-6 (Version None)
Quarter: 2007Q1

REPORT INFORMATION
  Report Type: 
  Country: None (occurrence: None)
  Receive Date: 20070219
  Receipt Date: 20070205
  Transmission Date: 20070707
  Serious: Yes (Death, Hospitalization)
  Sender: FDA-Public Use
  Company Number: US-ROCHE-481574

PATIENT
  Age: 66 Year
  Sex: Male

DRUGS (7)
  1. CAPECITABINE [Suspect]
     Dosage: GIVEN MONDAY THROUGH FRIDAY WITH WEEKENDS OFF FOR A TOTAL OF SIX WEEKS FOLLOWED BY 4 WEEK REST AS P+
     Route: 048
     Dates: start: 20050308, end: 20050423
  2. CAPECITABINE [Suspect]
     Dosage: GIVEN FOR 14 DAYS EVERY 3 WEEKS.
     Route: 048
     Dates: start: 20050524, end: 20050726
  3. CAPECITABINE [Suspect]
     Dosage: CAPECITABINE DOSE REDUCED BY 25%. GIVEN FOR 14 DAYS EVERY 3 WEEKS.
     Route: 048
     Dates: start: 20050726
  4. FENTANYL TRANSDERMAL SYSTEM [Concomitant]
  5. OXYCODONE HCL [Concomitant]
  6. ZOFRAN [Concomitant]
  7. PRILOSEC [Concomitant]

REACTIONS (4)
  - ANAEMIA [None]
  - DEATH [None]
  - MELAENA [None]
  - RECALL PHENOMENON [None]
